FAERS Safety Report 8250181-7 (Version None)
Quarter: 2012Q2

REPORT INFORMATION
  Report Type: 
  Country: None (occurrence: None)
  Receive Date: 20120402
  Receipt Date: 20120326
  Transmission Date: 20120825
  Serious: Yes (Hospitalization)
  Sender: FDA-Public Use
  Company Number: JP-PFIZER INC-2012076482

PATIENT
  Age: 36 Year
  Sex: Female
  Weight: 55.1 kg

DRUGS (10)
  1. TEMSIROLIMUS [Suspect]
     Indication: RENAL CELL CARCINOMA
     Dosage: 25 MG, WEEKLY
     Route: 042
     Dates: start: 20111021, end: 20111028
  2. FENTANYL [Concomitant]
     Indication: RENAL CELL CARCINOMA
     Dosage: 2.1 MG, EVERY THREE DAYS
     Route: 062
     Dates: start: 20111031, end: 20111101
  3. RESTAMIN [Concomitant]
     Indication: PROPHYLAXIS
     Dosage: 50 MG, 1X/DAY
     Route: 048
  4. VITAMEDIN CAPSULE [Concomitant]
     Indication: PROPHYLAXIS
     Dosage: 1 DF, 3X/DAY
     Route: 048
  5. MORPHINE HYDROCHLORIDE [Concomitant]
     Indication: RENAL CELL CARCINOMA
     Dosage: OPTIMAL DOSE, AS NEEDED
     Route: 048
  6. RULID [Concomitant]
     Indication: PROPHYLAXIS
     Dosage: 150 MG, 2X/DAY
     Route: 048
     Dates: end: 20111107
  7. OXYCONTIN [Concomitant]
     Indication: RENAL CELL CARCINOMA
     Dosage: 5 MG, 2X/DAY
     Route: 048
     Dates: end: 20111031
  8. MAGNESIUM OXIDE [Concomitant]
     Indication: PROPHYLAXIS
     Dosage: 330 MG, 3X/DAY
     Route: 048
  9. PROCHLORPERAZINE [Concomitant]
     Indication: PROPHYLAXIS
     Dosage: 5 MG, 3X/DAY
     Route: 048
     Dates: end: 20111101
  10. LAXOBERON [Concomitant]
     Indication: PROPHYLAXIS
     Dosage: OPTIMAL DOSE, AS NEEDED
     Route: 048

REACTIONS (1)
  - HEPATIC FUNCTION ABNORMAL [None]
